FAERS Safety Report 4404408-X (Version None)
Quarter: 2004Q3

REPORT INFORMATION
  Report Type: 
  Country: None (occurrence: None)
  Receive Date: 20040720
  Receipt Date: 20040707
  Transmission Date: 20050211
  Serious: Yes (Death, Hospitalization)
  Sender: FDA-Public Use
  Company Number: 175324

PATIENT
  Age: 67 Year
  Sex: Male
  Weight: 92.9874 kg

DRUGS (1)
  1. AVONEX [Suspect]
     Indication: MULTIPLE SCLEROSIS
     Dosage: 30 MCG QW IM
     Route: 030
     Dates: start: 19970101, end: 20030301

REACTIONS (2)
  - PNEUMONIA ASPIRATION [None]
  - VOMITING [None]
